FAERS Safety Report 18204944 (Version 2)
Quarter: 2020Q3

REPORT INFORMATION
  Report Type: Report from Study
  Country: None (occurrence: US)
  Receive Date: 20200828
  Receipt Date: 20200924
  Transmission Date: 20201103
  Serious: Yes (Other)
  Sender: FDA-Public Use
  Company Number: US-ABBVIE-20K-163-3540157-00

PATIENT
  Age: 76 Year
  Sex: Female
  Weight: 74.46 kg

DRUGS (1)
  1. HUMIRA [Suspect]
     Active Substance: ADALIMUMAB
     Indication: COLITIS ULCERATIVE
     Dosage: CITRATE FREE
     Route: 058
     Dates: start: 2013

REACTIONS (1)
  - Retinal detachment [Recovering/Resolving]

NARRATIVE: CASE EVENT DATE: 20200810
